FAERS Safety Report 24746076 (Version 1)
Quarter: 2024Q4

REPORT INFORMATION
  Report Type: Spontaneous
  Country: CN (occurrence: CN)
  Receive Date: 20241218
  Receipt Date: 20241218
  Transmission Date: 20250115
  Serious: Yes (Hospitalization)
  Sender: JIANGSU HENGRUI PHARMACEUTICALS CO., LTD.
  Company Number: CN-JIANGSU HENGRUI PHARMACEUTICALS CO., LTD.-H2024242706

PATIENT
  Age: 52 Year

DRUGS (2)
  1. OXALIPLATIN [Suspect]
     Active Substance: OXALIPLATIN
     Indication: Gastric cancer stage III
     Dosage: 216 MG
  2. CAPECITABINE [Suspect]
     Active Substance: CAPECITABINE
     Indication: Gastric cancer stage III
     Dosage: 1.5 G, BID

REACTIONS (1)
  - Drug eruption [Recovering/Resolving]
